FAERS Safety Report 5177737-2 (Version None)
Quarter: 2006Q4

REPORT INFORMATION
  Report Type: 
  Country: None (occurrence: None)
  Receive Date: 20061218
  Receipt Date: 20061024
  Transmission Date: 20070319
  Serious: No
  Sender: FDA-Public Use
  Company Number: US-AMGEN-KDL198029

PATIENT
  Sex: Female

DRUGS (6)
  1. SENSIPAR [Suspect]
     Indication: HYPERPARATHYROIDISM SECONDARY
     Dates: start: 20051001
  2. EPOGEN [Concomitant]
     Indication: DIALYSIS
  3. ZEMPLAR [Concomitant]
  4. RENAGEL [Concomitant]
  5. ATENOLOL [Concomitant]
  6. ACETAMINOPHEN [Concomitant]

REACTIONS (3)
  - DIZZINESS [None]
  - NAUSEA [None]
  - VOMITING [None]
